FAERS Safety Report 7032108-9 (Version None)
Quarter: 2010Q4

REPORT INFORMATION
  Report Type: 
  Country: None (occurrence: None)
  Receive Date: 20101007
  Receipt Date: 20100923
  Transmission Date: 20110411
  Serious: Yes (Hospitalization)
  Sender: FDA-Public Use
  Company Number: DE-RANBAXY-2010RR-37837

PATIENT
  Age: 76 Year
  Sex: Male
  Weight: 80 kg

DRUGS (7)
  1. CLINDAMYCIN [Suspect]
     Indication: TOOTH INFECTION
     Dosage: 600 MG, TID
     Route: 048
     Dates: start: 20100524, end: 20100530
  2. PREDNISOLONE [Suspect]
     Indication: MUSCULAR WEAKNESS
     Dosage: 5 MG, QD
     Route: 048
     Dates: start: 20100301
  3. MESTINON RETARD [Suspect]
     Indication: MUSCULAR WEAKNESS
     Dosage: 90 MG, BID
     Route: 048
     Dates: start: 20100301, end: 20100612
  4. AZATHIOPRINE [Suspect]
     Indication: MUSCULAR WEAKNESS
     Dosage: 25 MG, BID
     Route: 048
     Dates: start: 20100101, end: 20100607
  5. TAMSULOSIN [Concomitant]
     Indication: BENIGN PROSTATIC HYPERPLASIA
     Dosage: 0.4 MG, QD
     Route: 048
     Dates: start: 20040101
  6. OMEPRAZOLE [Concomitant]
     Indication: PROPHYLAXIS AGAINST GASTROINTESTINAL ULCER
     Dosage: 20 MG, QD
     Route: 048
     Dates: start: 20080101
  7. FENTANYL [Concomitant]
     Indication: PAIN
     Dosage: 5.78 MG, TID
     Route: 062
     Dates: start: 20090101

REACTIONS (2)
  - DIARRHOEA [None]
  - DRUG INTERACTION [None]
